FAERS Safety Report 20195036 (Version 6)
Quarter: 2022Q1

REPORT INFORMATION
  Report Type: Spontaneous
  Country: PT (occurrence: PT)
  Receive Date: 20211216
  Receipt Date: 20220228
  Transmission Date: 20220424
  Serious: Yes (Life-Threatening, Hospitalization, Other)
  Sender: FDA-Public Use
  Company Number: PT-MYLANLABS-2021M1077619

PATIENT
  Age: 59 Year
  Sex: Male

DRUGS (1)
  1. DICLOFENAC [Suspect]
     Active Substance: DICLOFENAC
     Indication: Injury
     Dosage: UNK, FOR ABOUT 10 DAYS, TREATMENT LASTING 5 DAYS
     Route: 048

REACTIONS (5)
  - Drug-induced liver injury [Recovered/Resolved]
  - Hepatotoxicity [Recovering/Resolving]
  - Choluria [Recovering/Resolving]
  - Pruritus [Recovered/Resolved]
  - Jaundice [Recovering/Resolving]
